FAERS Safety Report 9235441 (Version 1)
Quarter: 2013Q2

REPORT INFORMATION
  Report Type: Spontaneous
  Country: US (occurrence: None)
  Receive Date: 20130416
  Receipt Date: 20130416
  Transmission Date: 20140414
  Serious: Yes (Death)
  Sender: FDA-Public Use
  Company Number: None

PATIENT
  Age: 70 Year
  Sex: Female

DRUGS (1)
  1. TYKERB [Suspect]
     Indication: BREAST CANCER FEMALE
     Dosage: 5 TABLETS, DAILY, ORAL
     Route: 048
     Dates: start: 20100831, end: 20130211

REACTIONS (1)
  - Death [None]
